FAERS Safety Report 7036094-7 (Version None)
Quarter: 2010Q4

REPORT INFORMATION
  Report Type: 
  Country: None (occurrence: None)
  Receive Date: 20101008
  Receipt Date: 20090831
  Transmission Date: 20110411
  Serious: No
  Sender: FDA-Public Use
  Company Number: US-BRISTOL-MYERS SQUIBB COMPANY-14761035

PATIENT
  Age: 66 Year
  Sex: Male
  Weight: 89 kg

DRUGS (2)
  1. AVAPRO [Suspect]
     Indication: HYPERTENSION
     Dosage: STARTED 2 WEEKS AGO
     Dates: start: 20090801
  2. XANAX [Concomitant]

REACTIONS (1)
  - BLOOD PRESSURE FLUCTUATION [None]
